FAERS Safety Report 24034946 (Version 1)
Quarter: 2024Q3

REPORT INFORMATION
  Report Type: Report from Study
  Country: US (occurrence: US)
  Receive Date: 20240701
  Receipt Date: 20240701
  Transmission Date: 20241017
  Serious: No
  Sender: ALEXION PHARMACEUTICALS
  Company Number: US-AstraZeneca-CH-00653360A

PATIENT
  Sex: Male

DRUGS (3)
  1. ULTOMIRIS [Suspect]
     Active Substance: RAVULIZUMAB-CWVZ
     Indication: Myasthenia gravis
     Dosage: UNK
     Route: 065
  2. PREDNISONE [Suspect]
     Active Substance: PREDNISONE
     Indication: Product used for unknown indication
     Dosage: UNK
     Route: 065
  3. CELLCEPT [Suspect]
     Active Substance: MYCOPHENOLATE MOFETIL
     Indication: Product used for unknown indication
     Dosage: UNK
     Route: 065

REACTIONS (7)
  - Decreased appetite [Recovering/Resolving]
  - Weight decreased [Recovering/Resolving]
  - Brain fog [Recovering/Resolving]
  - Gastrointestinal disorder [Recovering/Resolving]
  - Nervousness [Recovering/Resolving]
  - Asthenia [Recovering/Resolving]
  - Glycosylated haemoglobin increased [Recovering/Resolving]
